FAERS Safety Report 7984989-X (Version None)
Quarter: 2011Q4

REPORT INFORMATION
  Report Type: 
  Country: None (occurrence: None)
  Receive Date: 20111216
  Receipt Date: 20111207
  Transmission Date: 20120403
  Serious: Yes (Hospitalization, Other)
  Sender: FDA-Public Use
  Company Number: AU-ASTRAZENECA-2011SE66554

PATIENT
  Age: 21260 Day
  Sex: Female
  Weight: 53.8 kg

DRUGS (48)
  1. K-ACETATE [Concomitant]
     Indication: ELECTROLYTE SUBSTITUTION THERAPY
     Route: 042
     Dates: start: 20111111, end: 20111113
  2. HYDROCORTISONE [Concomitant]
     Route: 042
     Dates: start: 20111030, end: 20111129
  3. ALBUMEX [Concomitant]
     Indication: ESCHERICHIA SEPSIS
     Route: 042
     Dates: start: 20111028, end: 20111028
  4. AZD9773 CODE NOT BROKEN [Concomitant]
     Indication: SEPSIS
     Dosage: BID
     Route: 042
     Dates: start: 20111026, end: 20111030
  5. VANCOMYCIN HYCHLORIDE [Concomitant]
     Dosage: CONTINUOUS INFUSION
     Route: 042
     Dates: start: 20111027, end: 20111028
  6. AZITHROMYCIN [Concomitant]
     Indication: SEPSIS
     Route: 042
     Dates: start: 20111025, end: 20111026
  7. CEFTRIAXONE [Concomitant]
     Indication: SEPSIS
     Route: 042
     Dates: start: 20111025, end: 20111026
  8. PIPERACILLIN AND TAZOBACTAM [Concomitant]
     Route: 042
     Dates: start: 20111114, end: 20111121
  9. MULTI-VITAMIN [Concomitant]
     Indication: ELECTROLYTE SUBSTITUTION THERAPY
     Route: 048
     Dates: start: 20111026, end: 20111107
  10. MIDAZOLAM [Concomitant]
     Indication: SEDATION
     Dosage: 0.9-15 MG DAILY, VARIABLE INFUSION
     Route: 042
     Dates: start: 20111025, end: 20111026
  11. MIDAZOLAM [Concomitant]
     Route: 042
     Dates: start: 20111025, end: 20111026
  12. VANCOMYCIN HYCHLORIDE [Concomitant]
     Dosage: CONTINUOUS INFUSION
     Route: 042
     Dates: start: 20111027, end: 20111028
  13. MAGNESIUM SULFATE [Concomitant]
     Indication: ELECTROLYTE SUBSTITUTION THERAPY
     Dosage: 10-20 MMOL AS REQUIRED
     Route: 042
     Dates: start: 20111026, end: 20111111
  14. VITAMIN K TAB [Concomitant]
     Indication: SEPSIS
     Route: 042
     Dates: start: 20111026, end: 20111107
  15. PROPOFOL [Concomitant]
     Indication: SEDATIVE THERAPY
     Dosage: 0-100 MG DAILY, VARIABLE INFUSION
     Route: 042
     Dates: start: 20111026, end: 20111107
  16. PANTROPRAZOLE [Concomitant]
     Indication: GASTRIC ULCER
     Route: 042
     Dates: start: 20111026, end: 20111108
  17. HEPARIN [Concomitant]
     Indication: DEEP VEIN THROMBOSIS
     Route: 058
     Dates: start: 20111002, end: 20111109
  18. SLOW-K [Concomitant]
     Indication: ELECTROLYTE SUBSTITUTION THERAPY
     Route: 048
     Dates: start: 20111109, end: 20111111
  19. AMIODARONE HCL [Concomitant]
     Indication: ARRHYTHMIA
     Route: 042
     Dates: start: 20111026, end: 20111026
  20. CIPROFLOXACIN [Concomitant]
     Indication: ESCHERICHIA SEPSIS
     Route: 042
     Dates: start: 20111031, end: 20111108
  21. CIPROFLOXACIN [Concomitant]
     Route: 042
     Dates: start: 20111109, end: 20111113
  22. PIPERACILLIN AND TAZOBACTAM [Concomitant]
     Indication: SEPSIS
     Route: 042
     Dates: start: 20111028, end: 20111031
  23. THIAMINE HCL [Concomitant]
     Indication: ALCOHOL ABUSE
     Route: 042
     Dates: start: 20111026, end: 20111107
  24. TRACE ELEMENT [Concomitant]
     Indication: ELECTROLYTE SUBSTITUTION THERAPY
     Dosage: 1 VIAL, ONCE DAILY
     Route: 042
     Dates: start: 20111026, end: 20111107
  25. PLATELETS [Concomitant]
     Route: 042
     Dates: start: 20111028, end: 20111028
  26. VANCOMYCIN HYCHLORIDE [Concomitant]
     Indication: SEPSIS
     Route: 042
     Dates: start: 20111026, end: 20111026
  27. VANCOMYCIN HYCHLORIDE [Concomitant]
     Indication: STAPHYLOCOCCAL INFECTION
     Route: 042
     Dates: start: 20111026, end: 20111026
  28. MICONAZOLE [Concomitant]
     Indication: PERIPROCTITIS
     Route: 003
     Dates: start: 20111108
  29. HYDROCORTISONE [Concomitant]
     Indication: SEPSIS
     Route: 042
     Dates: start: 20111026, end: 20111028
  30. MIDAZOLAM [Concomitant]
     Indication: SEDATIVE THERAPY
     Dosage: 0.9-15 MG DAILY, VARIABLE INFUSION
     Route: 042
     Dates: start: 20111025, end: 20111026
  31. PLASMA [Concomitant]
     Route: 042
     Dates: start: 20111026, end: 20111026
  32. ALBUMEX [Concomitant]
     Route: 042
     Dates: start: 20111031, end: 20111031
  33. MEROPENEM [Suspect]
     Indication: PNEUMONIA
     Dosage: CONTINUOUS INFUSION
     Route: 042
     Dates: start: 20111026, end: 20111028
  34. MEROPENEM [Suspect]
     Indication: MULTI-ORGAN FAILURE
     Dosage: CONTINUOUS INFUSION
     Route: 042
     Dates: start: 20111026, end: 20111028
  35. FROSEMIDE [Concomitant]
     Indication: RENAL FAILURE ACUTE
     Dosage: 40-80 MG AS REQUIRED
     Route: 042
     Dates: start: 20111105
  36. DEXTROSE 50% [Concomitant]
     Indication: HYPOGLYCAEMIA
     Route: 042
     Dates: start: 20111026, end: 20111109
  37. METOCLOPRAMIDE [Concomitant]
     Indication: IMPAIRED GASTRIC EMPTYING
     Route: 042
     Dates: start: 20111026, end: 20111103
  38. POTASSIUM CHLORIDE [Concomitant]
     Indication: ELECTROLYTE SUBSTITUTION THERAPY
     Dosage: 10-30 MMOL, AS REQUIRED
     Route: 042
     Dates: start: 20111028, end: 20111104
  39. MIDAZOLAM [Concomitant]
     Route: 042
     Dates: start: 20111025, end: 20111026
  40. PLASMA [Concomitant]
     Indication: ESCHERICHIA SEPSIS
     Route: 042
     Dates: start: 20111026, end: 20111026
  41. ALBUMEX [Concomitant]
     Route: 042
     Dates: start: 20111031, end: 20111031
  42. ERYTHROMYCIN [Concomitant]
     Indication: IMPAIRED GASTRIC EMPTYING
     Route: 042
     Dates: start: 20111027, end: 20111103
  43. VENTOLIN [Concomitant]
     Indication: ACUTE RESPIRATORY DISTRESS SYNDROME
     Dosage: 4 PUFFS QID
     Route: 055
     Dates: start: 20111030, end: 20111101
  44. POTASSIUM DIHYDROGEN PHOSPHATE [Concomitant]
     Indication: ELECTROLYTE SUBSTITUTION THERAPY
     Route: 042
     Dates: start: 20111026, end: 20111026
  45. ROCURONIUM BROMIDE [Concomitant]
     Indication: PARALYSIS
     Route: 042
     Dates: start: 20111026, end: 20111026
  46. SODIUM BICARBONATE [Concomitant]
     Indication: SEPSIS
     Route: 042
     Dates: start: 20111026, end: 20111026
  47. FENTANYL [Concomitant]
     Indication: PAIN
     Dosage: 100-1000 MG, VARIABLE INFUSION
     Route: 042
     Dates: start: 20111025, end: 20111027
  48. PLATELETS [Concomitant]
     Indication: ESCHERICHIA SEPSIS
     Route: 042
     Dates: start: 20111026, end: 20111026

REACTIONS (3)
  - GASTROINTESTINAL HAEMORRHAGE [None]
  - LIVER FUNCTION TEST ABNORMAL [None]
  - HEPATIC INFECTION FUNGAL [None]
